FAERS Safety Report 8318859-4 (Version None)
Quarter: 2012Q2

REPORT INFORMATION
  Report Type: 
  Country: None (occurrence: None)
  Receive Date: 20120427
  Receipt Date: 20120425
  Transmission Date: 20120825
  Serious: Yes (Death, Life-Threatening, Hospitalization)
  Sender: FDA-Public Use
  Company Number: DK-B.I. PHARMACEUTICALS,INC./RIDGEFIELD-2012-SW-00221DB

PATIENT
  Sex: Male
  Weight: 80 kg

DRUGS (4)
  1. PRADAXA [Suspect]
     Indication: EMBOLISM VENOUS
     Dosage: 220 MG
     Route: 048
     Dates: start: 20120214, end: 20120217
  2. METFORMIN ^ACTAVIS^ [Concomitant]
     Indication: TYPE 2 DIABETES MELLITUS
  3. METOPROLOL SUCCINATE [Concomitant]
  4. DIGOXIN [Concomitant]

REACTIONS (5)
  - SEPSIS [None]
  - MELAENA [None]
  - RENAL FAILURE [None]
  - HAEMATURIA [None]
  - CEREBRAL HAEMORRHAGE [None]
